FAERS Safety Report 10252002 (Version 6)
Quarter: 2014Q3

REPORT INFORMATION
  Report Type: Spontaneous
  Country: IT (occurrence: None)
  Receive Date: 20140619
  Receipt Date: 20140728
  Transmission Date: 20150326
  Serious: Yes (Other)
  Sender: FDA-Public Use
  Company Number: AUR-APL-2014-06431

PATIENT
  Age: 51 Year
  Sex: Female

DRUGS (8)
  1. RAMIPRIL. [Suspect]
     Active Substance: RAMIPRIL
     Indication: CARDIAC FAILURE
     Route: 048
     Dates: start: 20130926, end: 20140131
  2. MELOXICAM. [Suspect]
     Active Substance: MELOXICAM
     Indication: CHEST PAIN
     Route: 048
     Dates: start: 20140101, end: 20140130
  3. PRAZEPAM (PRAZEPAM) [Concomitant]
  4. RAMIPRIL. [Suspect]
     Active Substance: RAMIPRIL
     Indication: HYPERTENSION
     Route: 048
     Dates: start: 20130926, end: 20140131
  5. ANTRA [Suspect]
     Active Substance: OMEPRAZOLE
     Indication: PROPHYLAXIS AGAINST GASTROINTESTINAL ULCER
     Route: 048
     Dates: start: 20030310, end: 20140131
  6. CARDIRENE [Suspect]
     Active Substance: ASPIRIN DL-LYSINE
     Indication: HAEMANGIOMA OF SKIN
     Route: 048
     Dates: start: 20050426, end: 20140131
  7. CARDIRENE [Suspect]
     Active Substance: ASPIRIN DL-LYSINE
     Indication: PLATELET AGGREGATION INHIBITION
     Route: 048
     Dates: start: 20050426, end: 20140131
  8. MELOXICAM. [Suspect]
     Active Substance: MELOXICAM
     Indication: MUSCULOSKELETAL CHEST PAIN
     Route: 048
     Dates: start: 20140101, end: 20140130

REACTIONS (6)
  - Hyperchlorhydria [None]
  - Presyncope [None]
  - Hypertension [None]
  - Drug interaction [None]
  - Renal impairment [None]
  - Abdominal pain upper [None]

NARRATIVE: CASE EVENT DATE: 20140131
